FAERS Safety Report 25259376 (Version 1)
Quarter: 2025Q2

REPORT INFORMATION
  Report Type: Spontaneous
  Country: US (occurrence: None)
  Receive Date: 20250430
  Receipt Date: 20250430
  Transmission Date: 20250717
  Serious: Yes (Other)
  Sender: FDA-CTU
  Company Number: None

PATIENT
  Age: 31 Year
  Sex: Female
  Weight: 62.1 kg

DRUGS (3)
  1. BRIUMVI [Suspect]
     Active Substance: UBLITUXIMAB-XIIY
     Indication: Multiple sclerosis
     Route: 042
     Dates: start: 20250412
  2. BRIUMVI [Concomitant]
     Active Substance: UBLITUXIMAB-XIIY
     Dates: start: 20250412
  3. BRIUMVI [Concomitant]
     Active Substance: UBLITUXIMAB-XIIY
     Dates: start: 20250426

REACTIONS (6)
  - Muscle spasms [None]
  - Myalgia [None]
  - Chills [None]
  - Tremor [None]
  - Tension [None]
  - Cyanosis [None]

NARRATIVE: CASE EVENT DATE: 20250426
